FAERS Safety Report 5303273-6 (Version None)
Quarter: 2007Q2

REPORT INFORMATION
  Report Type: 
  Country: None (occurrence: None)
  Receive Date: 20070420
  Receipt Date: 20070417
  Transmission Date: 20071010
  Serious: Yes (Other)
  Sender: FDA-Public Use
  Company Number: US-GLAXOSMITHKLINE-A0647623A

PATIENT
  Age: 77 Year
  Sex: Male

DRUGS (8)
  1. ADVAIR DISKUS 100/50 [Suspect]
     Indication: ASTHMA
     Dosage: 1PUFF TWICE PER DAY
     Route: 055
     Dates: start: 20070410
  2. COMBIVENT [Concomitant]
  3. NEXIUM [Concomitant]
  4. ATENOLOL [Concomitant]
  5. LISINOPRIL AND HYDROCHLOROTHIAZIDE [Concomitant]
  6. FOLIC ACID [Concomitant]
  7. VITAMIN B6 [Concomitant]
  8. ALLOPURINOL [Concomitant]

REACTIONS (3)
  - GOUT [None]
  - LOCAL SWELLING [None]
  - PAIN IN EXTREMITY [None]
